FAERS Safety Report 6407474-5 (Version None)
Quarter: 2009Q4

REPORT INFORMATION
  Report Type: 
  Country: None (occurrence: None)
  Receive Date: 20091020
  Receipt Date: 20091012
  Transmission Date: 20100525
  Serious: Yes (Hospitalization)
  Sender: FDA-Public Use
  Company Number: FR-ROXANE LABORATORIES, INC.-2009-RO-01056RO

PATIENT
  Age: 45 Year
  Sex: Male

DRUGS (6)
  1. LITHIUM CARBONATE [Suspect]
  2. METFORMIN [Suspect]
  3. GLUCOSE SALINE SOLUTION [Concomitant]
     Indication: FLUID REPLACEMENT
     Route: 042
  4. GLUCOSE SALINE SOLUTION [Concomitant]
     Indication: DRUG TOXICITY
  5. SALINE [Concomitant]
     Indication: FLUID REPLACEMENT
     Route: 042
  6. SALINE [Concomitant]
     Indication: DRUG TOXICITY

REACTIONS (12)
  - ABDOMINAL PAIN UPPER [None]
  - COMA [None]
  - DEHYDRATION [None]
  - DEPRESSED LEVEL OF CONSCIOUSNESS [None]
  - DIARRHOEA [None]
  - DRUG TOXICITY [None]
  - LACTIC ACIDOSIS [None]
  - POLYURIA [None]
  - RENAL FAILURE ACUTE [None]
  - SUICIDE ATTEMPT [None]
  - TACHYCARDIA [None]
  - VOMITING [None]
